FAERS Safety Report 13625045 (Version 1)
Quarter: 2017Q2

REPORT INFORMATION
  Report Type: Spontaneous
  Country: US (occurrence: US)
  Receive Date: 20170608
  Receipt Date: 20170608
  Transmission Date: 20170830
  Serious: Yes (Other)
  Sender: FDA-Public Use
  Company Number: US-HORIZON-KRY-0043-2017

PATIENT
  Age: 40 Year
  Sex: Male

DRUGS (4)
  1. KRYSTEXXA [Suspect]
     Active Substance: PEGLOTICASE
     Indication: GOUT
     Dosage: 8 MG/ML EVERY 2 WEEKS
     Route: 042
  2. COLCHICINE. [Concomitant]
     Active Substance: COLCHICINE
  3. PROBENECID. [Concomitant]
     Active Substance: PROBENECID
  4. ALLOPURINOL. [Concomitant]
     Active Substance: ALLOPURINOL

REACTIONS (2)
  - Drug ineffective [Unknown]
  - Anaphylactic reaction [Unknown]
